FAERS Safety Report 7049308-4 (Version None)
Quarter: 2010Q4

REPORT INFORMATION
  Report Type: 
  Country: None (occurrence: None)
  Receive Date: 20101018
  Receipt Date: 20101006
  Transmission Date: 20110411
  Serious: Yes (Death, Hospitalization)
  Sender: FDA-Public Use
  Company Number: ZA-ROCHE-730150

PATIENT
  Sex: Male
  Weight: 78 kg

DRUGS (8)
  1. BEVACIZUMAB [Suspect]
     Route: 042
     Dates: start: 20100714
  2. TEMSIROLIMUS [Suspect]
     Route: 042
     Dates: start: 20100714
  3. ESSENTIALE [Concomitant]
     Indication: VITAMIN SUPPLEMENTATION
     Dates: start: 20100701
  4. ESPIRIDE [Concomitant]
     Indication: DEPRESSION
     Dates: start: 20090701
  5. FERRIMED [Concomitant]
     Indication: VITAMIN SUPPLEMENTATION
     Dates: start: 20100701
  6. PANADO [Concomitant]
     Indication: PAIN
     Dates: start: 20100725
  7. PANADO [Concomitant]
     Dates: start: 20100819
  8. VALOID [Concomitant]
     Indication: NAUSEA
     Dates: start: 20100819

REACTIONS (3)
  - BRONCHOPNEUMONIA [None]
  - DEHYDRATION [None]
  - VOMITING [None]
